FAERS Safety Report 4499723-8 (Version None)
Quarter: 2004Q4

REPORT INFORMATION
  Report Type: 
  Country: None (occurrence: None)
  Receive Date: 20041110
  Receipt Date: 20041110
  Transmission Date: 20050328
  Serious: Yes (Hospitalization)
  Sender: FDA-Public Use
  Company Number: None

PATIENT
  Age: 54 Year
  Sex: Female
  Weight: 74.3 kg

DRUGS (9)
  1. INFLIXIMAB  100MG CENTOCOR [Suspect]
     Indication: RHEUMATOID ARTHRITIS
     Dosage: Q 8 WEEKS  INTRAVENOUS
     Route: 042
  2. PREDNISONE [Concomitant]
  3. METHOTREXATE [Concomitant]
  4. ATROVENT INH [Concomitant]
  5. VALCYCLOVIR [Concomitant]
  6. IBUPROFEN [Concomitant]
  7. GINKGO BILOBA [Concomitant]
  8. M.V.I. [Concomitant]
  9. CALCI [Concomitant]

REACTIONS (1)
  - UROSEPSIS [None]
